FAERS Safety Report 19715069 (Version 5)
Quarter: 2022Q1

REPORT INFORMATION
  Report Type: Report from Study
  Country: US (occurrence: US)
  Receive Date: 20210818
  Receipt Date: 20220131
  Transmission Date: 20220424
  Serious: No
  Sender: FDA-Public Use
  Company Number: NVSC2021US184698

PATIENT
  Sex: Female

DRUGS (1)
  1. ENTRESTO [Suspect]
     Active Substance: SACUBITRIL\VALSARTAN
     Indication: Product used for unknown indication
     Dosage: 1 DF, UNKNOWN(49/51 MG)
     Route: 065

REACTIONS (7)
  - Chest discomfort [Unknown]
  - Memory impairment [Unknown]
  - Feeling abnormal [Unknown]
  - Malaise [Unknown]
  - Psychiatric symptom [Unknown]
  - Inappropriate schedule of product administration [Unknown]
  - Product dose omission issue [Unknown]
